FAERS Safety Report 14794335 (Version 1)
Quarter: 2018Q2

REPORT INFORMATION
  Report Type: Spontaneous
  Country: US (occurrence: US)
  Receive Date: 20180423
  Receipt Date: 20180423
  Transmission Date: 20180711
  Serious: Yes (Other)
  Sender: FDA-Public Use
  Company Number: US-PFIZER INC-2018162171

PATIENT
  Age: 59 Year
  Sex: Female

DRUGS (2)
  1. XELJANZ XR [Suspect]
     Active Substance: TOFACITINIB CITRATE
     Indication: RHEUMATOID ARTHRITIS
     Dosage: 11 MG, DAILY
  2. PREDNISONE. [Suspect]
     Active Substance: PREDNISONE
     Dosage: 7 MG, DAILY

REACTIONS (3)
  - Contusion [Unknown]
  - Anaemia [Unknown]
  - Hyperthyroidism [Unknown]
